FAERS Safety Report 25450595 (Version 1)
Quarter: 2025Q2

REPORT INFORMATION
  Report Type: Spontaneous
  Country: US (occurrence: None)
  Receive Date: 20250617
  Receipt Date: 20250617
  Transmission Date: 20250716
  Serious: Yes (Hospitalization)
  Sender: FDA-CTU
  Company Number: None

PATIENT
  Sex: Male

DRUGS (11)
  1. PULMOZYME [Suspect]
     Active Substance: DORNASE ALFA
     Indication: Cystic fibrosis
     Dosage: FREQUENCY : DAILY;?
     Dates: start: 20250109
  2. AD VAIR DISKU AER [Concomitant]
  3. ALBUTEROL AER HFA [Concomitant]
  4. ALBUTEROL SULFATE [Concomitant]
     Active Substance: ALBUTEROL SULFATE
  5. FLUOXETINE CAP [Concomitant]
  6. FLUOXETINE CAP [Concomitant]
  7. FLUTICASONE SPR [Concomitant]
  8. HYPERSAL NEB [Concomitant]
  9. IPRATROPIUM/ SOL ALBUTER [Concomitant]
  10. PHYTONADIONE TAB [Concomitant]
  11. PULMO2YME SOL [Concomitant]

REACTIONS (5)
  - Cystic fibrosis [None]
  - Condition aggravated [None]
  - Dyspnoea [None]
  - Loss of personal independence in daily activities [None]
  - Communication disorder [None]
